FAERS Safety Report 4325786-6 (Version None)
Quarter: 2004Q1

REPORT INFORMATION
  Report Type: 
  Country: None (occurrence: None)
  Receive Date: 20040324
  Receipt Date: 20040305
  Transmission Date: 20041129
  Serious: Yes (Other)
  Sender: FDA-Public Use
  Company Number: USA040361098

PATIENT
  Age: 47 Year
  Sex: Female

DRUGS (2)
  1. FORTEO [Suspect]
     Indication: OSTEOPOROSIS
     Dates: start: 20031001
  2. FOSAMAX [Concomitant]

REACTIONS (7)
  - ADHESION [None]
  - BACK PAIN [None]
  - HEART RATE INCREASED [None]
  - HOT FLUSH [None]
  - PAIN EXACERBATED [None]
  - POST PROCEDURAL PAIN [None]
  - SALPINGO-OOPHORECTOMY BILATERAL [None]
